FAERS Safety Report 6129147-9 (Version None)
Quarter: 2009Q1

REPORT INFORMATION
  Report Type: 
  Country: None (occurrence: None)
  Receive Date: 20090323
  Receipt Date: 20090323
  Transmission Date: 20090719
  Serious: Yes (Other)
  Sender: FDA-Public Use
  Company Number: None

PATIENT
  Sex: Female
  Weight: 49.8957 kg

DRUGS (2)
  1. CLONIDINE [Suspect]
     Indication: HYPERTENSION
     Dosage: 1/2 AS NEEDED
  2. ACTAVIS [Suspect]

REACTIONS (4)
  - EAR PAIN [None]
  - HOT FLUSH [None]
  - MIDDLE INSOMNIA [None]
  - RASH [None]
